FAERS Safety Report 8975374 (Version 1)
Quarter: 2012Q4

REPORT INFORMATION
  Report Type: 
  Country: US (occurrence: US)
  Receive Date: 20121219
  Receipt Date: 20121219
  Transmission Date: 20130627
  Serious: No
  Sender: FDA-Public Use
  Company Number: US-AMGEN-USASP2012072870

PATIENT
  Age: 65 Year
  Sex: Female
  Weight: 51.25 kg

DRUGS (4)
  1. PROLIA [Suspect]
     Indication: OSTEOPOROSIS POSTMENOPAUSAL
     Dosage: UNK
     Dates: start: 20120326
  2. PROLIA [Suspect]
  3. LETROZOLE [Concomitant]
     Dosage: UNK
  4. LEVOXYL [Concomitant]
     Dosage: UNK

REACTIONS (2)
  - Rash [Recovering/Resolving]
  - Eczema [Recovering/Resolving]
